FAERS Safety Report 8256681-8 (Version None)
Quarter: 2012Q2

REPORT INFORMATION
  Report Type: 
  Country: None (occurrence: None)
  Receive Date: 20120403
  Receipt Date: 20120328
  Transmission Date: 20120825
  Serious: Yes (Death, Other)
  Sender: FDA-Public Use
  Company Number: FR-JNJFOC-20110510582

PATIENT
  Sex: Male

DRUGS (2)
  1. ABIRATERONE [Suspect]
     Route: 048
  2. ABIRATERONE [Suspect]
     Indication: PROSTATE CANCER
     Route: 048
     Dates: start: 20110301

REACTIONS (6)
  - PROSTATE CANCER [None]
  - DRUG INEFFECTIVE [None]
  - LYMPHANGITIS [None]
  - DYSPNOEA [None]
  - RENAL FAILURE [None]
  - OEDEMA [None]
